FAERS Safety Report 4692474-6 (Version None)
Quarter: 2005Q2

REPORT INFORMATION
  Report Type: 
  Country: None (occurrence: None)
  Receive Date: 20050613
  Receipt Date: 20050323
  Transmission Date: 20051028
  Serious: Yes (Death, Hospitalization)
  Sender: FDA-Public Use
  Company Number: 2005-00590

PATIENT
  Age: 69 Year
  Sex: Female
  Weight: 75.7 kg

DRUGS (2)
  1. VELCADE [Suspect]
     Indication: MULTIPLE MYELOMA
     Dosage: 1.60 MG, UNK, INTRAVENOUS
     Route: 042
     Dates: start: 20050120
  2. SCIO-469 () [Suspect]
     Indication: MULTIPLE MYELOMA
     Dosage: 60.00 MG, TID, ORAL
     Route: 048
     Dates: start: 20041221

REACTIONS (2)
  - DISEASE PROGRESSION [None]
  - RENAL FAILURE [None]
